FAERS Safety Report 16309499 (Version 8)
Quarter: 2020Q3

REPORT INFORMATION
  Report Type: Report from Study
  Country: ES (occurrence: ES)
  Receive Date: 20190514
  Receipt Date: 20191224
  Transmission Date: 20201105
  Serious: Yes (Hospitalization)
  Sender: FDA-Public Use
  Company Number: PHHO2019ES004768

PATIENT
  Age: 75 Year
  Sex: Male
  Weight: 62 kg

DRUGS (8)
  1. BLINDED DABRAFENIB [Suspect]
     Active Substance: DABRAFENIB
     Indication: MALIGNANT MELANOMA
     Dosage: UNK
     Route: 048
     Dates: end: 20181214
  2. BLINDED PDR001 [Suspect]
     Active Substance: SPARTALIZUMAB
     Indication: MALIGNANT MELANOMA
     Dosage: UNK
     Route: 048
     Dates: end: 20181214
  3. BLINDED PDR001 [Suspect]
     Active Substance: SPARTALIZUMAB
     Indication: MALIGNANT MELANOMA
     Dosage: UNK
     Route: 048
     Dates: end: 20181214
  4. PLACEBO [Suspect]
     Active Substance: UNSPECIFIED INGREDIENT
     Indication: MALIGNANT MELANOMA
     Dosage: UNK
     Route: 048
     Dates: end: 20181214
  5. BLINDED NO TREATMENT RECEIVED [Suspect]
     Active Substance: INVESTIGATIONAL PRODUCT
     Indication: MALIGNANT MELANOMA
     Dosage: UNK
     Route: 048
     Dates: end: 20181214
  6. DABRAFENIB [Suspect]
     Active Substance: DABRAFENIB
     Indication: METASTATIC MALIGNANT MELANOMA
     Dosage: 200 MG, QMO
     Route: 048
     Dates: start: 20180531, end: 20190501
  7. TRAMETINIB [Suspect]
     Active Substance: TRAMETINIB
     Indication: METASTATIC MALIGNANT MELANOMA
     Dosage: 2 MG, QMO
     Route: 048
     Dates: start: 20180531, end: 20190501
  8. BLINDED TRAMETINIB [Suspect]
     Active Substance: TRAMETINIB
     Indication: MALIGNANT MELANOMA
     Dosage: UNK
     Route: 048
     Dates: end: 20181214

REACTIONS (1)
  - Hepatotoxicity [Recovered/Resolved]

NARRATIVE: CASE EVENT DATE: 20190502
